FAERS Safety Report 22803657 (Version 4)
Quarter: 2023Q4

REPORT INFORMATION
  Report Type: Spontaneous
  Country: US (occurrence: US)
  Receive Date: 20230809
  Receipt Date: 20231116
  Transmission Date: 20240109
  Serious: Yes (Hospitalization)
  Sender: FDA-Public Use
  Company Number: US-BRISTOL-MYERS SQUIBB COMPANY-2023-109598

PATIENT
  Age: 64 Year
  Sex: Male

DRUGS (3)
  1. POMALYST [Suspect]
     Active Substance: POMALIDOMIDE
     Indication: Plasma cell myeloma
     Route: 048
     Dates: start: 202307
  2. POMALYST [Suspect]
     Active Substance: POMALIDOMIDE
     Dosage: FREQUECNY: CHANGED CYCLE TO EVERY OTHER DAY
     Route: 048
  3. POMALYST [Suspect]
     Active Substance: POMALIDOMIDE
     Route: 048

REACTIONS (7)
  - Urinary tract infection [Unknown]
  - Platelet count decreased [Unknown]
  - Pyrexia [Unknown]
  - Full blood count decreased [Unknown]
  - Chills [Unknown]
  - Nausea [Unknown]
  - Off label use [Unknown]
